FAERS Safety Report 5443245-4 (Version None)
Quarter: 2007Q3

REPORT INFORMATION
  Report Type: 
  Country: None (occurrence: None)
  Receive Date: 20070831
  Receipt Date: 20070831
  Transmission Date: 20080115
  Serious: Yes (Other)
  Sender: FDA-Public Use
  Company Number: None

PATIENT
  Age: 18 Year
  Sex: Male

DRUGS (1)
  1. CORICIDIN HBP COUGH + COLD [Suspect]
     Indication: INTENTIONAL OVERDOSE
     Dosage: PO
     Route: 048

REACTIONS (3)
  - DRUG ABUSER [None]
  - INTENTIONAL OVERDOSE [None]
  - MENTAL STATUS CHANGES [None]
